FAERS Safety Report 5933141-8 (Version None)
Quarter: 2008Q4

REPORT INFORMATION
  Report Type: 
  Country: None (occurrence: None)
  Receive Date: 20081028
  Receipt Date: 20081022
  Transmission Date: 20090506
  Serious: Yes (Death, Other)
  Sender: FDA-Public Use
  Company Number: GB-AMGEN-US290152

PATIENT
  Sex: Female

DRUGS (2)
  1. ENBREL [Suspect]
     Indication: POLYARTHRITIS
     Route: 058
     Dates: start: 20070713
  2. PREDNISOLONE [Concomitant]
     Indication: POLYARTHRITIS
     Route: 048
     Dates: start: 20050201

REACTIONS (3)
  - HEADACHE [None]
  - MALAISE [None]
  - MYOCARDIAL INFARCTION [None]
